FAERS Safety Report 23965231 (Version 1)
Quarter: 2024Q2

REPORT INFORMATION
  Report Type: Spontaneous
  Country: ZA (occurrence: ZA)
  Receive Date: 20240612
  Receipt Date: 20240612
  Transmission Date: 20240716
  Serious: Yes (Hospitalization)
  Sender: FDA-Public Use
  Company Number: ZA-ABBOTT-2024A-1382657

PATIENT
  Age: 54 Year
  Sex: Male

DRUGS (30)
  1. FENOFIBRATE [Suspect]
     Active Substance: FENOFIBRATE
     Indication: Blood cholesterol
     Dosage: 200 MG TAKE ONE CAPSULE IN THE MORNING
     Route: 048
  2. ACETYLCYSTEINE [Concomitant]
     Active Substance: ACETYLCYSTEINE
     Indication: Product used for unknown indication
     Dosage: TAKE ONE TO TWO TABLETS DISSOLVED IN WATER 200 MG
     Route: 048
  3. CORENZA C [Concomitant]
     Indication: Product used for unknown indication
     Dosage: TAKE TWO DISSOLVED IN WATER
     Route: 048
  4. STILPANE [Concomitant]
     Indication: Pain
     Dosage: TAKE TWO TABLETS SIX HOURLY
     Route: 048
  5. FEXO [Concomitant]
     Indication: Hypersensitivity
     Dosage: 120 MG TAKE ONE TABLET IN THE MORNING
     Route: 048
  6. ACETAZOLAMIDE [Concomitant]
     Active Substance: ACETAZOLAMIDE
     Indication: Glaucoma
     Dosage: 250 MG TAKE ONE TABLET DAILY
     Route: 048
  7. GELATIN [Concomitant]
     Active Substance: GELATIN
     Indication: Product used for unknown indication
     Dosage: 500 MG TAKE TWO CAPSULES SIX HOURLY
     Route: 048
  8. LIPOGEN [Concomitant]
     Indication: Blood cholesterol
     Dosage: 20 MG TAKE ONE TABLET IN THE MORNING
     Route: 048
  9. BUTYLSCOPOLAMINE BROMIDE [Concomitant]
     Active Substance: BUTYLSCOPOLAMINE BROMIDE
     Indication: Product used for unknown indication
     Dosage: 10 MG TAKE TWO TABLETS THREE TIMES A DAY
     Route: 048
  10. SYNALEVE [Concomitant]
     Indication: Pain
     Dosage: TAKE TWO CAPSULES THREE TIMES A DAY
     Route: 048
  11. OPTIVE PLUS [Concomitant]
     Indication: Product used for unknown indication
     Dosage: AS PER PACKAGE INSERT
  12. LINCTAGON C [Concomitant]
     Indication: Product used for unknown indication
     Dosage: TAKE ONE DISSOLVED IN WATER THREE TIMES A DAY
     Route: 048
  13. RUPALLERG [Concomitant]
     Indication: Hypersensitivity
     Dosage: 10 MG TAKE ONE TABLET AT NIGHT
     Route: 048
  14. METFORMIN [Concomitant]
     Active Substance: METFORMIN HYDROCHLORIDE
     Indication: Diabetes mellitus
     Dosage: 1000 MG TAKE ONE TABLET TWICE A DAY
     Route: 048
  15. ALPHAGAN P [Concomitant]
     Active Substance: BRIMONIDINE TARTRATE
     Indication: Glaucoma
     Dosage: 1.5 MG INSTILL ONE DROP IN RIGHT EYE TWICE A DAY
     Route: 047
  16. LATANOPROST\TIMOLOL MALEATE [Concomitant]
     Active Substance: LATANOPROST\TIMOLOL MALEATE
     Indication: Glaucoma
     Dosage: INSTILL ONE DROP IN RIGHT EYE AT NIGHT
     Route: 047
  17. OSELFLU [Concomitant]
     Indication: Product used for unknown indication
     Dosage: 75 MG TAKE ONE CAPSULE TWICE A DAY
     Route: 048
  18. DYNAPAYNE [Concomitant]
     Indication: Pain
     Dosage: TAKE TWO TABLETS THREE TIMES A DAY
     Route: 048
  19. DEMAZIN [Concomitant]
     Active Substance: CHLORPHENIRAMINE MALEATE\PHENYLPROPANOLAMINE HYDROCHLORIDE
     Indication: Product used for unknown indication
     Dosage: TAKE ONE TABLET TWICE A DAY?ND REPETAB
     Route: 048
  20. FML [Concomitant]
     Active Substance: FLUOROMETHOLONE
     Indication: Product used for unknown indication
     Dosage: 1 MG INSTILL ONE DROP IN RIGHT EYE THREE TIMES A DAY
     Route: 047
  21. SULFAMETHOXAZOLE\TRIMETHOPRIM [Concomitant]
     Active Substance: SULFAMETHOXAZOLE\TRIMETHOPRIM
     Indication: Acne
     Dosage: 960 MG TAKE ONE TABLET ORALLY TWICE A DAY
     Route: 048
  22. TOBRADEX [Concomitant]
     Active Substance: DEXAMETHASONE\TOBRAMYCIN
     Indication: Product used for unknown indication
     Dosage: INSTILL ONE DROP FOUR TIMES A DAY IN RIGHT EYE?TOBRAMYCIN 3 MG IN 1 ML  AND DEXAMETHASONE 1  MG I...
     Route: 047
  23. MAXITROL [Concomitant]
     Active Substance: DEXAMETHASONE\NEOMYCIN SULFATE\POLYMYXIN B SULFATE
     Indication: Product used for unknown indication
     Dosage: INSTILL IN RIGHT EYE AT NIGHT
     Route: 047
  24. ACITAB [Concomitant]
     Indication: Product used for unknown indication
     Dosage: 400 MG TAKE ONE DISSOLVED IN WATER
  25. SOLPHYLLEX [Concomitant]
     Indication: Product used for unknown indication
     Dosage: TAKE 15ML THREE TIMES A DAY
     Route: 048
  26. PSEUDOEPHEDRINE\TRIPROLIDINE [Concomitant]
     Active Substance: PSEUDOEPHEDRINE\TRIPROLIDINE
     Indication: Product used for unknown indication
     Dosage: AS PER PACKAGE INSERT
  27. ACULAR [Concomitant]
     Active Substance: KETOROLAC TROMETHAMINE
     Indication: Product used for unknown indication
     Dosage: 0.4 % INSTILL ONE DROP FOUR TIMES A DAY IN RIGHT EYE
     Route: 047
  28. AMLODIPINE BESYLATE [Concomitant]
     Active Substance: AMLODIPINE BESYLATE
     Indication: Hypertension
     Dosage: 5 MG TAKE ONE TABLET IN THE MORNING
     Route: 048
  29. AMILORIDE HYDROCHLORIDE\HYDROCHLOROTHIAZIDE [Concomitant]
     Active Substance: AMILORIDE HYDROCHLORIDE\HYDROCHLOROTHIAZIDE
     Indication: Hypertension
     Dosage: 5/50 MG TAKE ONE TABLET IN THE MORNING
     Route: 048
  30. PROBIFLORA RX [Concomitant]
     Indication: Product used for unknown indication
     Dosage: TAKE ONE CAPSULE TWICE A DAY
     Route: 048

REACTIONS (1)
  - Eye operation [Unknown]
